FAERS Safety Report 20873893 (Version 1)
Quarter: 2022Q2

REPORT INFORMATION
  Report Type: Report from Study
  Country: AU (occurrence: AU)
  Receive Date: 20220525
  Receipt Date: 20220525
  Transmission Date: 20220721
  Serious: Yes (Other)
  Sender: FDA-Public Use
  Company Number: AU-NOVARTISPH-NVSC2022AU116579

PATIENT
  Age: 64 Year
  Sex: Male

DRUGS (1)
  1. TRAMETINIB [Suspect]
     Active Substance: TRAMETINIB
     Indication: Erdheim-Chester disease
     Dosage: 2 MG
     Route: 048
     Dates: start: 20220326, end: 20220415

REACTIONS (2)
  - Nephropathy toxic [Recovered/Resolved]
  - Skin toxicity [Recovering/Resolving]

NARRATIVE: CASE EVENT DATE: 20220331
